FAERS Safety Report 5807219-3 (Version None)
Quarter: 2008Q3

REPORT INFORMATION
  Report Type: 
  Country: None (occurrence: None)
  Receive Date: 20080711
  Receipt Date: 20080704
  Transmission Date: 20090109
  Serious: Yes (Life-Threatening, Hospitalization)
  Sender: FDA-Public Use
  Company Number: B0528529A

PATIENT
  Age: 82 Year
  Sex: Female

DRUGS (10)
  1. AUGMENTIN '125' [Suspect]
     Indication: BRONCHOPNEUMONIA
     Dosage: 162.5MG THREE TIMES PER DAY
     Route: 048
     Dates: start: 20080422, end: 20080428
  2. SINTROM [Suspect]
     Indication: ARRHYTHMIA SUPRAVENTRICULAR
     Dosage: 487.5MG PER DAY
     Route: 048
     Dates: end: 20080427
  3. REMERON [Suspect]
     Dosage: 15MG PER DAY
     Route: 048
  4. SOTALOL HCL [Concomitant]
     Indication: ATRIAL FIBRILLATION
     Dosage: 40MG TWICE PER DAY
     Route: 048
     Dates: start: 20080427
  5. PLENDIL [Concomitant]
     Indication: ESSENTIAL HYPERTENSION
     Route: 048
     Dates: start: 20080427
  6. RANITIDINE [Concomitant]
     Dosage: 150MG PER DAY
     Route: 058
     Dates: start: 20080427
  7. TEMGESIC [Concomitant]
     Dosage: .2MG TWICE PER DAY
     Route: 048
     Dates: start: 20080427
  8. ACETYLCYSTEINE [Concomitant]
     Indication: BRONCHOPNEUMONIA
     Dosage: 200MG THREE TIMES PER DAY
     Route: 048
     Dates: start: 20080427
  9. LASIX [Concomitant]
     Dosage: 40MG PER DAY
     Route: 048
     Dates: start: 20080427
  10. ZOLPIDEM TARTRATE [Concomitant]
     Dosage: 10MG PER DAY
     Route: 048

REACTIONS (11)
  - ANAEMIA [None]
  - BARRETT'S OESOPHAGUS [None]
  - BRADYCARDIA [None]
  - CONDITION AGGRAVATED [None]
  - DRUG INTERACTION [None]
  - DYSSTASIA [None]
  - GASTROINTESTINAL ULCER HAEMORRHAGE [None]
  - HYPOTENSION [None]
  - HYPOTHERMIA [None]
  - INTERNATIONAL NORMALISED RATIO INCREASED [None]
  - MELAENA [None]
